FAERS Safety Report 19535633 (Version 1)
Quarter: 2021Q3

REPORT INFORMATION
  Report Type: Spontaneous
  Country: US (occurrence: US)
  Receive Date: 20210713
  Receipt Date: 20210713
  Transmission Date: 20211014
  Serious: Yes (Hospitalization)
  Sender: FDA-Public Use
  Company Number: None

PATIENT
  Age: 67 Year
  Sex: Female
  Weight: 162 kg

DRUGS (14)
  1. TURMERIC [Concomitant]
     Active Substance: HERBALS\TURMERIC
  2. XGEVA [Concomitant]
     Active Substance: DENOSUMAB
  3. PERCOCET [Concomitant]
     Active Substance: ACETAMINOPHEN\OXYCODONE HYDROCHLORIDE
  4. ASCORBIC ACID 1000MG [Concomitant]
  5. VITAMIN D 25MCG [Concomitant]
  6. LORAZEPAM 2MG [Concomitant]
     Active Substance: LORAZEPAM
  7. BITTER MELON [Concomitant]
  8. IBRANCE [Suspect]
     Active Substance: PALBOCICLIB
     Indication: BREAST CANCER
     Dosage: ?          OTHER FREQUENCY:QD FOR 21/28 DAYS;?
     Route: 048
     Dates: start: 20210417
  9. MULTIVITAMIN [Concomitant]
     Active Substance: VITAMINS
  10. MODIFIED CITRUS PECTIN [Concomitant]
  11. ASHWAGANDHA [Concomitant]
     Active Substance: HERBALS
  12. FASLODEX [Concomitant]
     Active Substance: FULVESTRANT
  13. CALCIUM CARBONATE 600MG [Concomitant]
  14. MELATIN 3?1MG [Concomitant]

REACTIONS (1)
  - Hospitalisation [None]

NARRATIVE: CASE EVENT DATE: 20210713
